FAERS Safety Report 18081216 (Version 1)
Quarter: 2020Q3

REPORT INFORMATION
  Report Type: Spontaneous
  Country: FR (occurrence: FR)
  Receive Date: 20200728
  Receipt Date: 20200728
  Transmission Date: 20201103
  Serious: Yes (Hospitalization)
  Sender: FDA-Public Use
  Company Number: NVSC2020FR206603

PATIENT
  Age: 84 Year
  Sex: Female

DRUGS (10)
  1. OMEPRAZOLE. [Suspect]
     Active Substance: OMEPRAZOLE
     Indication: POISONING DELIBERATE
     Dosage: 80 MG, ONCE/SINGLE
     Route: 048
     Dates: start: 20200703, end: 20200703
  2. LEVOTHYROX [Suspect]
     Active Substance: LEVOTHYROXINE
     Indication: POISONING DELIBERATE
     Dosage: 300 UG, ONCE/SINGLE
     Route: 048
     Dates: start: 20200703, end: 20200703
  3. XARELTO [Suspect]
     Active Substance: RIVAROXABAN
     Indication: POISONING DELIBERATE
     Dosage: 80 MG, ONCE/SINGLE
     Route: 048
     Dates: start: 20200703, end: 20200703
  4. RIVOTRIL [Suspect]
     Active Substance: CLONAZEPAM
     Indication: POISONING DELIBERATE
     Dosage: 2 DF, ONCE/SINGLE (2 FLACONS)
     Route: 048
     Dates: start: 20200703, end: 20200703
  5. AMIODARONE [Suspect]
     Active Substance: AMIODARONE
     Indication: POISONING DELIBERATE
     Dosage: 300 MG, ONCE/SINGLE
     Route: 048
     Dates: start: 20200703, end: 20200703
  6. CANDESARTAN CILEXETIL. [Suspect]
     Active Substance: CANDESARTAN CILEXETIL
     Indication: POISONING DELIBERATE
     Dosage: 4 DF, ONCE/SINGLE
     Route: 048
     Dates: start: 20200703, end: 20200703
  7. ACEBUTOLOL HYDROCHLORIDE. [Suspect]
     Active Substance: ACEBUTOLOL HYDROCHLORIDE
     Indication: POISONING DELIBERATE
     Dosage: 200 MG, ONCE/SINGLE
     Route: 048
     Dates: start: 20200703, end: 20200703
  8. LERCAN [Suspect]
     Active Substance: LERCANIDIPINE
     Indication: POISONING DELIBERATE
     Dosage: 6 DF, ONCE/SINGLE
     Route: 048
     Dates: start: 20200703, end: 20200703
  9. PARACETAMOL [Suspect]
     Active Substance: ACETAMINOPHEN
     Indication: POISONING DELIBERATE
     Dosage: UNK (NON PR?CIS?E)
     Route: 048
     Dates: start: 20200703, end: 20200703
  10. LYSANXIA [Suspect]
     Active Substance: PRAZEPAM
     Indication: POISONING DELIBERATE
     Dosage: 2 DF, ONCE/SINGLE (2 FLACONS)
     Route: 048
     Dates: start: 20200703, end: 20200703

REACTIONS (3)
  - Disturbance in attention [Recovered/Resolved]
  - Prothrombin time shortened [Recovering/Resolving]
  - Hypotension [Recovered/Resolved]

NARRATIVE: CASE EVENT DATE: 20200703
